FAERS Safety Report 6841680-0 (Version None)
Quarter: 2010Q3

REPORT INFORMATION
  Report Type: 
  Country: None (occurrence: None)
  Receive Date: 20100714
  Receipt Date: 20070713
  Transmission Date: 20110219
  Serious: No
  Sender: FDA-Public Use
  Company Number: US-PFIZER INC-2007059786

PATIENT
  Sex: Female
  Weight: 86.363 kg

DRUGS (7)
  1. CHANTIX [Suspect]
     Indication: SMOKING CESSATION THERAPY
     Route: 048
     Dates: start: 20070704
  2. ASACOL [Concomitant]
     Indication: CROHN'S DISEASE
  3. ATENOLOL [Concomitant]
  4. LORAZEPAM [Concomitant]
  5. VITAMIN E [Concomitant]
  6. VITACAL [Concomitant]
  7. MULTI-VITAMINS [Concomitant]

REACTIONS (1)
  - NAUSEA [None]
